FAERS Safety Report 26158360 (Version 1)
Quarter: 2025Q4

REPORT INFORMATION
  Report Type: Spontaneous
  Country: JP (occurrence: JP)
  Receive Date: 20251215
  Receipt Date: 20251215
  Transmission Date: 20260118
  Serious: Yes (Hospitalization, Other)
  Sender: MERCK KGAA
  Company Number: JP-Merck Healthcare KGaA-2025062313

PATIENT
  Age: 65 Year
  Sex: Male

DRUGS (12)
  1. BAVENCIO [Suspect]
     Active Substance: AVELUMAB
     Indication: Metastatic carcinoma of the bladder
  2. PADCEV [Suspect]
     Active Substance: ENFORTUMAB VEDOTIN-EJFV
     Indication: Metastatic carcinoma of the bladder
     Dates: start: 202404, end: 202412
  3. GEMCITABINE [Suspect]
     Active Substance: GEMCITABINE
     Indication: Metastatic carcinoma of the bladder
  4. CARBOPLATIN [Suspect]
     Active Substance: CARBOPLATIN
     Indication: Metastatic carcinoma of the bladder
  5. DEXTROSE [Concomitant]
     Active Substance: DEXTROSE MONOHYDRATE
     Indication: Product used for unknown indication
     Dosage: ADMINISTERED IN AN HOUR
  6. DEXTROSE [Concomitant]
     Active Substance: DEXTROSE MONOHYDRATE
     Dosage: 100ML WAS ADMINISTERED IN 30 MINUTES, WITH 100ML?POURED IN AT THE END.
  7. SODIUM CHLORIDE [Concomitant]
     Active Substance: SODIUM CHLORIDE
     Indication: Product used for unknown indication
     Dosage: 100ML WAS ADMINISTERED IN 30 MINUTES, WITH 100ML POURED IN AT THE END
  8. FELBINAC [Concomitant]
     Active Substance: FELBINAC
     Indication: Myalgia
     Dosage: PASTING
  9. FELBINAC [Concomitant]
     Active Substance: FELBINAC
     Indication: Arthralgia
  10. PREGABALIN [Concomitant]
     Active Substance: PREGABALIN
     Indication: Sedation
  11. CALCIUM CARBONATE\CHOLECALCIFEROL\MAGNESIUM CARBONATE [Concomitant]
     Active Substance: CALCIUM CARBONATE\CHOLECALCIFEROL\MAGNESIUM CARBONATE
     Indication: Mineral supplementation
  12. VITAMIN C [Concomitant]
     Active Substance: ASCORBIC ACID
     Indication: Product used for unknown indication

REACTIONS (39)
  - Metastases to bone [Unknown]
  - Immune system disorder [Unknown]
  - Renal impairment [Unknown]
  - Haemoglobin decreased [Unknown]
  - Gait disturbance [Unknown]
  - Thrombocytopenia [Unknown]
  - Leukopenia [Unknown]
  - Exercise tolerance decreased [Unknown]
  - C-reactive protein increased [Unknown]
  - Intercostal neuralgia [Unknown]
  - Dizziness [Unknown]
  - Neoplasm progression [Unknown]
  - Nausea [Unknown]
  - Cancer pain [Unknown]
  - Insomnia [Unknown]
  - Bacterial infection [Unknown]
  - Abdominal distension [Unknown]
  - Post herpetic neuralgia [Unknown]
  - Dysstasia [Unknown]
  - Malaise [Unknown]
  - Muscle atrophy [Unknown]
  - Muscular weakness [Unknown]
  - Hypoaesthesia [Unknown]
  - Movement disorder [Unknown]
  - Middle insomnia [Unknown]
  - Irritability [Unknown]
  - Chest pain [Unknown]
  - Alopecia [Unknown]
  - Apathy [Unknown]
  - Physical deconditioning [Unknown]
  - Male sexual dysfunction [Unknown]
  - Mental fatigue [Unknown]
  - Fatigue [Unknown]
  - Constipation [Unknown]
  - Weight decreased [Recovered/Resolved]
  - Decreased appetite [Unknown]
  - Fatigue [Unknown]
  - Back pain [Unknown]
  - Pyrexia [Recovered/Resolved]

NARRATIVE: CASE EVENT DATE: 20240101
